FAERS Safety Report 26216440 (Version 1)
Quarter: 2025Q4

REPORT INFORMATION
  Report Type: Spontaneous
  Country: CN (occurrence: CN)
  Receive Date: 20251231
  Receipt Date: 20251231
  Transmission Date: 20260117
  Serious: Yes (Hospitalization, Other)
  Sender: RANBAXY
  Company Number: CN-SUN PHARMACEUTICAL INDUSTRIES INC-2025R1-544020

PATIENT
  Age: 69 Year
  Sex: Male

DRUGS (3)
  1. METHOTREXATE [Suspect]
     Active Substance: METHOTREXATE
     Indication: Psoriasis
     Dosage: 10 MILLIGRAM, WEEKLY LOW-DOSE METHOTREXATE THERAPY
     Route: 065
  2. METHOTREXATE [Suspect]
     Active Substance: METHOTREXATE
     Dosage: 20 MILLIGRAM, CUMULATIVE METHOTREXATE
     Route: 065
  3. FOLIC ACID [Concomitant]
     Active Substance: FOLIC ACID
     Indication: Psoriasis
     Dosage: 10 MILLIGRAM, WEEKLY
     Route: 065

REACTIONS (11)
  - Toxicity to various agents [Recovering/Resolving]
  - Pulmonary mucormycosis [Recovering/Resolving]
  - Myelosuppression [Recovering/Resolving]
  - Mucosal toxicity [Recovering/Resolving]
  - Dysphagia [Recovering/Resolving]
  - Ulcer [Recovering/Resolving]
  - Cough [Recovering/Resolving]
  - Wheezing [Recovering/Resolving]
  - Respiratory distress [Recovering/Resolving]
  - Swelling face [Recovering/Resolving]
  - Dysarthria [Recovering/Resolving]
